FAERS Safety Report 21618114 (Version 2)
Quarter: 2022Q4

REPORT INFORMATION
  Report Type: Report from Study
  Country: US (occurrence: US)
  Receive Date: 20221119
  Receipt Date: 20221123
  Transmission Date: 20230113
  Serious: No
  Sender: FDA-Public Use
  Company Number: US-ABBVIE-4176537

PATIENT
  Age: 58 Year
  Sex: Female

DRUGS (1)
  1. HUMIRA [Suspect]
     Active Substance: ADALIMUMAB
     Indication: Psoriatic arthropathy
     Dosage: CITRATE FREE, STRENGTH 40 MILLIGRAM
     Route: 058

REACTIONS (9)
  - Insomnia [Not Recovered/Not Resolved]
  - Dry mouth [Not Recovered/Not Resolved]
  - Decreased appetite [Not Recovered/Not Resolved]
  - Road traffic accident [Recovering/Resolving]
  - Dizziness [Recovered/Resolved with Sequelae]
  - Confusional state [Not Recovered/Not Resolved]
  - Contusion [Recovered/Resolved]
  - Sinusitis [Recovering/Resolving]
  - Restless legs syndrome [Unknown]

NARRATIVE: CASE EVENT DATE: 20221020
